FAERS Safety Report 8600716-7 (Version None)
Quarter: 2012Q3

REPORT INFORMATION
  Report Type: 
  Country: None (occurrence: None)
  Receive Date: 20120817
  Receipt Date: 20120808
  Transmission Date: 20120928
  Serious: Yes (Hospitalization, Other)
  Sender: FDA-Public Use
  Company Number: CA-SANOFI-AVENTIS-2011SA061131

PATIENT
  Age: 59 Year
  Sex: Female

DRUGS (13)
  1. ADALAT [Concomitant]
  2. CICLESONIDE [Concomitant]
  3. SINGULAIR [Concomitant]
  4. CLONAZEPAM [Concomitant]
  5. ALBUTEROL SULATE [Concomitant]
  6. SYNTHROID [Concomitant]
  7. ORENCIA [Suspect]
     Indication: RHEUMATOID ARTHRITIS
     Dosage: 41 INFUSIONS
     Route: 042
     Dates: start: 20080904, end: 20120713
  8. ORENCIA [Suspect]
     Dosage: 41 INFUSIONS
     Route: 042
     Dates: start: 20080904, end: 20120713
  9. ORENCIA [Suspect]
  10. RAMIPRIL [Concomitant]
  11. PLAVIX [Suspect]
     Route: 042
  12. NOVORAPID [Concomitant]
  13. LANTUS [Concomitant]

REACTIONS (5)
  - KIDNEY INFECTION [None]
  - EPISTAXIS [None]
  - FATIGUE [None]
  - METABOLIC ENCEPHALOPATHY [None]
  - BLOOD PRESSURE INCREASED [None]
